FAERS Safety Report 7933666-X (Version None)
Quarter: 2011Q4

REPORT INFORMATION
  Report Type: 
  Country: None (occurrence: None)
  Receive Date: 20111122
  Receipt Date: 20111024
  Transmission Date: 20120403
  Serious: No
  Sender: FDA-Public Use
  Company Number: RS-NOVOPROD-337260

PATIENT

DRUGS (6)
  1. BISOPROLOL FUMARATE [Concomitant]
     Indication: HYPERTENSION
     Dosage: 2.5 MG, QD
     Dates: start: 20100901
  2. LIRAGLUTIDE FLEXPEN [Suspect]
     Indication: OBESITY
     Dosage: 3 MG, QD
     Route: 058
     Dates: start: 20110830, end: 20111008
  3. BARALGETAS [Concomitant]
     Dosage: 500 MG, QD
     Dates: start: 20111008, end: 20111010
  4. FOSINOPRIL SODIUM [Concomitant]
     Indication: HYPERTENSION
     Dosage: 5 MG, QD
     Dates: start: 20100901
  5. TOLYCAR [Concomitant]
     Dosage: 4 G, QD
     Dates: start: 20111008, end: 20111010
  6. CONTROLOC                          /01263201/ [Concomitant]
     Dosage: 40 MG, QD
     Dates: start: 20111008

REACTIONS (1)
  - CHOLELITHIASIS [None]
